FAERS Safety Report 7348201-7 (Version None)
Quarter: 2011Q1

REPORT INFORMATION
  Report Type: 
  Country: None (occurrence: None)
  Receive Date: 20110311
  Receipt Date: 20110304
  Transmission Date: 20110831
  Serious: Yes (Life-Threatening, Hospitalization)
  Sender: FDA-Public Use
  Company Number: JP-ASTRAZENECA-2011SE05218

PATIENT
  Age: 31127 Day
  Sex: Female
  Weight: 37 kg

DRUGS (13)
  1. TAKEPRON [Concomitant]
     Indication: REFLUX OESOPHAGITIS
     Route: 048
     Dates: start: 19930101
  2. LUVOX [Concomitant]
     Indication: ANXIETY DISORDER
     Route: 048
     Dates: start: 19930101
  3. MOBIC [Concomitant]
     Route: 048
  4. SERMION [Concomitant]
     Indication: CEREBRAL INFARCTION
     Route: 048
     Dates: start: 19930101
  5. SEDIEL [Concomitant]
     Indication: PSYCHOSOMATIC DISEASE
     Route: 048
     Dates: start: 19930101
  6. BLOPRESS [Suspect]
     Indication: HYPERTENSION
     Route: 048
     Dates: start: 19930101, end: 20110124
  7. PREDONINE [Concomitant]
     Indication: POLYMYALGIA RHEUMATICA
     Route: 048
     Dates: start: 19930101
  8. ARICEPT [Concomitant]
     Route: 048
  9. AMLODIN OD [Concomitant]
     Indication: HYPERTENSION
     Route: 048
     Dates: start: 19930101
  10. VERAPAMIL HCL [Concomitant]
     Indication: ARRHYTHMIA
     Route: 048
     Dates: start: 19930101
  11. LIPITOR [Concomitant]
     Indication: DYSLIPIDAEMIA
     Route: 048
     Dates: start: 19930101
  12. CALBLOCK [Concomitant]
     Indication: HYPERTENSION
     Route: 048
     Dates: start: 19930101
  13. NITRODERM [Concomitant]
     Indication: ARRHYTHMIA
     Route: 062
     Dates: start: 19930101

REACTIONS (6)
  - HYPERKALAEMIA [None]
  - DECREASED APPETITE [None]
  - DIARRHOEA [None]
  - DEHYDRATION [None]
  - DEPRESSED LEVEL OF CONSCIOUSNESS [None]
  - NAUSEA [None]
